FAERS Safety Report 14950520 (Version 1)
Quarter: 2018Q2

REPORT INFORMATION
  Report Type: Spontaneous
  Country: US (occurrence: US)
  Receive Date: 20180530
  Receipt Date: 20180530
  Transmission Date: 20180711
  Serious: Yes (Hospitalization)
  Sender: FDA-Public Use
  Company Number: US-TEVA-2018-US-895750

PATIENT
  Sex: Male

DRUGS (2)
  1. CLONIDINE. [Suspect]
     Active Substance: CLONIDINE
     Route: 062
     Dates: start: 20180419
  2. CLONIDINE. [Suspect]
     Active Substance: CLONIDINE
     Route: 062
     Dates: start: 20180322

REACTIONS (4)
  - Drug ineffective [Unknown]
  - Vomiting [Unknown]
  - Blood pressure increased [Unknown]
  - Headache [Unknown]
